FAERS Safety Report 17061805 (Version 1)
Quarter: 2019Q4

REPORT INFORMATION
  Report Type: Spontaneous
  Country: US (occurrence: US)
  Receive Date: 20191121
  Receipt Date: 20191121
  Transmission Date: 20200122
  Serious: No
  Sender: FDA-Public Use
  Company Number: US-009507513-1911USA004937

PATIENT
  Sex: Male

DRUGS (1)
  1. PREGNYL [Suspect]
     Active Substance: CHORIOGONADOTROPIN ALFA
     Route: 030

REACTIONS (3)
  - No adverse event [Unknown]
  - Product dose omission [Unknown]
  - Product packaging issue [Unknown]

NARRATIVE: CASE EVENT DATE: 20191108
